FAERS Safety Report 22776129 (Version 5)
Quarter: 2024Q2

REPORT INFORMATION
  Report Type: Report from Study
  Country: ZA (occurrence: ZA)
  Receive Date: 20230802
  Receipt Date: 20240523
  Transmission Date: 20240716
  Serious: Yes (Life-Threatening, Hospitalization, Other)
  Sender: FDA-Public Use
  Company Number: ZA-TAKEDA-2023TUS033629

PATIENT
  Age: 55 Year
  Sex: Female

DRUGS (8)
  1. VEDOLIZUMAB [Suspect]
     Active Substance: VEDOLIZUMAB
     Indication: Colitis ulcerative
     Dosage: 300 MILLIGRAM
     Route: 042
     Dates: start: 20221130
  2. ASACOL [Concomitant]
     Active Substance: MESALAMINE
     Indication: Proctitis
     Dosage: UNK
     Dates: start: 20090825
  3. ASACOL [Concomitant]
     Active Substance: MESALAMINE
     Indication: Colitis ulcerative
     Dosage: UNK
     Dates: start: 20211019
  4. ASACOL [Concomitant]
     Active Substance: MESALAMINE
     Dosage: UNK
     Dates: start: 20211102
  5. ASACOL [Concomitant]
     Active Substance: MESALAMINE
     Dosage: UNK
     Dates: start: 20220425
  6. AZATHIOPRINE [Concomitant]
     Active Substance: AZATHIOPRINE
     Dosage: UNK
     Dates: start: 20220426
  7. PREDNISONE [Concomitant]
     Active Substance: PREDNISONE
     Indication: Colitis ulcerative
     Dosage: UNK
     Dates: start: 20211019
  8. AZASAN [Concomitant]
     Active Substance: AZATHIOPRINE
     Indication: Colitis ulcerative
     Dosage: UNK
     Dates: start: 20220425

REACTIONS (13)
  - Generalised oedema [Not Recovered/Not Resolved]
  - Colitis ulcerative [Unknown]
  - Asthenia [Recovering/Resolving]
  - Skin discolouration [Unknown]
  - Poor venous access [Unknown]
  - Hypophagia [Unknown]
  - Malaise [Unknown]
  - Diarrhoea [Unknown]
  - Inappropriate schedule of product administration [Recovered/Resolved]
  - Illness [Not Recovered/Not Resolved]
  - Drug ineffective [Not Recovered/Not Resolved]
  - Fluid retention [Not Recovered/Not Resolved]
  - Headache [Recovering/Resolving]

NARRATIVE: CASE EVENT DATE: 20230324
